FAERS Safety Report 18118071 (Version 1)
Quarter: 2020Q3

REPORT INFORMATION
  Report Type: Spontaneous
  Country: US (occurrence: US)
  Receive Date: 20200805
  Receipt Date: 20200805
  Transmission Date: 20201103
  Serious: Yes (Hospitalization)
  Sender: FDA-Public Use
  Company Number: None

PATIENT
  Sex: Male

DRUGS (2)
  1. ONDANSETRON HYDROCHLORIDE 4MG/2ML HIKMA [Suspect]
     Active Substance: ONDANSETRON HYDROCHLORIDE
     Indication: PANCREATIC CARCINOMA
     Route: 042
     Dates: start: 20200102
  2. HEPARIN LOCK FLUSH [Suspect]
     Active Substance: HEPARIN SODIUM
     Indication: PANCREATIC CARCINOMA
     Dosage: ?          OTHER DOSE:500 U;?
     Route: 042
     Dates: start: 20200102

REACTIONS (1)
  - Delusion [None]
